FAERS Safety Report 9258023 (Version 3)
Quarter: 2013Q3

REPORT INFORMATION
  Report Type: Spontaneous
  Country: US (occurrence: US)
  Receive Date: 20130426
  Receipt Date: 20130927
  Transmission Date: 20140515
  Serious: Yes (Disabling)
  Sender: FDA-Public Use
  Company Number: US-ASTRAZENECA-2013SE27365

PATIENT
  Age: 49 Year
  Sex: Female
  Weight: 72.6 kg

DRUGS (20)
  1. NEXIUM [Suspect]
     Indication: GASTROOESOPHAGEAL REFLUX DISEASE
     Dosage: ONE DAILY
     Route: 048
  2. NEXIUM [Suspect]
     Indication: GASTROOESOPHAGEAL REFLUX DISEASE
     Route: 048
     Dates: start: 20071102
  3. PREVACID [Concomitant]
     Indication: GASTROOESOPHAGEAL REFLUX DISEASE
  4. TUMS [Concomitant]
     Dosage: TWO TUMS ONCE A WEEK OR AS NEEDED
  5. MULTIVITAMIN [Concomitant]
  6. XANAX [Concomitant]
     Indication: ANXIETY
  7. XANAX [Concomitant]
     Indication: POST-TRAUMATIC STRESS DISORDER
  8. XANAX [Concomitant]
     Indication: PANIC ATTACK
  9. CRESTOR [Concomitant]
  10. CELEXA [Concomitant]
     Indication: ANXIETY
  11. CELEXA [Concomitant]
     Indication: PANIC ATTACK
  12. CELEXA [Concomitant]
     Indication: HYPERTENSION
  13. CELEXA [Concomitant]
     Indication: POST-TRAUMATIC STRESS DISORDER
  14. LISINOPRIL [Concomitant]
     Dates: start: 20071023
  15. CEFTIN [Concomitant]
     Dates: start: 20071023
  16. ALLEGRA [Concomitant]
     Indication: MULTIPLE ALLERGIES
     Dates: start: 20071023
  17. ACIPHEX [Concomitant]
     Indication: GASTROOESOPHAGEAL REFLUX DISEASE
     Dates: start: 20080529
  18. PAXIL [Concomitant]
     Dates: start: 20080909
  19. ASPIRIN [Concomitant]
     Dates: start: 20110117
  20. HYDROCHLOROTHIAZIDE [Concomitant]
     Dates: start: 20110117

REACTIONS (18)
  - Wrist fracture [Unknown]
  - Back disorder [Unknown]
  - Mental disorder [Unknown]
  - Bone loss [Unknown]
  - Intervertebral disc protrusion [Unknown]
  - Tooth disorder [Unknown]
  - Anxiety [Unknown]
  - Post-traumatic stress disorder [Unknown]
  - Depression [Unknown]
  - Osteoporosis [Unknown]
  - Bone density decreased [Unknown]
  - Bone disorder [Unknown]
  - Multiple fractures [Unknown]
  - Calcium deficiency [Unknown]
  - Arthritis [Unknown]
  - Hand fracture [Unknown]
  - Cataract [Unknown]
  - Type 2 diabetes mellitus [Unknown]
